FAERS Safety Report 8903524 (Version 2)
Quarter: 2012Q4

REPORT INFORMATION
  Report Type: Report from Study
  Country: AU (occurrence: AU)
  Receive Date: 20121112
  Receipt Date: 20121204
  Transmission Date: 20130627
  Serious: Yes (Hospitalization)
  Sender: FDA-Public Use
  Company Number: AU-AMGEN-AUSCT2012071242

PATIENT
  Age: 75 Year
  Sex: Female
  Weight: 61 kg

DRUGS (7)
  1. DARBEPOETIN ALFA [Suspect]
     Indication: NEPHROGENIC ANAEMIA
     Dosage: 40 mug, q2wk
     Route: 042
     Dates: start: 20120130
  2. VITAMIN B [Concomitant]
     Dosage: 1 DF, qd
  3. CALCIUM CARBONATE [Concomitant]
     Dosage: 2000 mg, UNK
  4. ATORVASTATIN CALCIUM [Concomitant]
     Dosage: 10 mg, UNK
     Dates: start: 20080312
  5. ALLOPURINOL [Concomitant]
     Dosage: 100 mg, UNK
     Dates: start: 20120416
  6. PARACETAMOL [Concomitant]
     Dosage: UNK UNK, prn
     Dates: start: 20120416
  7. VITAMIN C [Concomitant]
     Dosage: 250 mg, 3 times/wk
     Dates: start: 200904

REACTIONS (1)
  - Carpal tunnel syndrome [Unknown]
